FAERS Safety Report 10690000 (Version 1)
Quarter: 2015Q1

REPORT INFORMATION
  Report Type: Spontaneous
  Country: IN (occurrence: IN)
  Receive Date: 20150105
  Receipt Date: 20150105
  Transmission Date: 20150720
  Serious: Yes (Hospitalization, Other)
  Sender: FDA-Public Use
  Company Number: IN-JNJFOC-20141220872

PATIENT

DRUGS (3)
  1. HUMAN CLOTTABLE PROTEINHUMAN THROMBIN [Suspect]
     Active Substance: FIBRINOGEN HUMAN\THROMBIN HUMAN
     Indication: CEREBROSPINAL FLUID LEAKAGE
     Route: 065
  2. OXIDISED CELLULOSE [Suspect]
     Active Substance: CELLULOSE, OXIDIZED
     Indication: CEREBROSPINAL FLUID LEAKAGE
  3. ALL OTHER THERAPEUTIC PRODUCTS [Concomitant]
     Active Substance: UNSPECIFIED INGREDIENT
     Indication: CEREBROSPINAL FLUID LEAKAGE

REACTIONS (2)
  - Off label use [Recovered/Resolved]
  - Cerebrospinal fluid leakage [Recovered/Resolved]
